FAERS Safety Report 8486286-5 (Version None)
Quarter: 2012Q3

REPORT INFORMATION
  Report Type: 
  Country: None (occurrence: None)
  Receive Date: 20120703
  Receipt Date: 20120622
  Transmission Date: 20120928
  Serious: Yes (Hospitalization)
  Sender: FDA-Public Use
  Company Number: US-GLAXOSMITHKLINE-A0770322A

PATIENT
  Age: 51 Year
  Sex: Female
  Weight: 79.5 kg

DRUGS (4)
  1. AVANDIA [Suspect]
     Indication: DIABETES MELLITUS
     Dosage: 2MG PER DAY
     Route: 048
     Dates: start: 20050901, end: 20050901
  2. LISINOPRIL [Concomitant]
  3. AVANDAMET [Suspect]
     Indication: TYPE 2 DIABETES MELLITUS
     Route: 048
     Dates: start: 20040727, end: 20070214
  4. BUPROPION HYDROCHLORIDE [Concomitant]

REACTIONS (1)
  - MYOCARDIAL INFARCTION [None]
